FAERS Safety Report 7779838-9 (Version None)
Quarter: 2011Q3

REPORT INFORMATION
  Report Type: 
  Country: None (occurrence: None)
  Receive Date: 20110927
  Receipt Date: 20110923
  Transmission Date: 20111222
  Serious: Yes (Death, Other)
  Sender: FDA-Public Use
  Company Number: VE-PFIZER INC-2011184696

PATIENT
  Age: 61 Year
  Sex: Female

DRUGS (4)
  1. LIPITOR [Suspect]
     Indication: HYPERCHOLESTEROLAEMIA
     Dosage: 40 MG, 1X/DAY
     Route: 048
     Dates: end: 20090501
  2. LIPITOR [Suspect]
     Dosage: 80 MG, 1X/DAY
     Route: 048
     Dates: start: 20090501, end: 20100101
  3. CARVEDILOL [Concomitant]
     Indication: HYPERTENSION
     Dosage: UNK
     Route: 048
     Dates: end: 20100101
  4. INSULIN [Concomitant]
     Indication: DIABETES MELLITUS
     Dosage: UNK
     Route: 058
     Dates: end: 20100101

REACTIONS (2)
  - VASCULAR GRAFT [None]
  - ORGAN FAILURE [None]
